FAERS Safety Report 13085946 (Version 1)
Quarter: 2017Q1

REPORT INFORMATION
  Report Type: Report from Study
  Country: None (occurrence: NL)
  Receive Date: 20170104
  Receipt Date: 20170104
  Transmission Date: 20170428
  Serious: Yes (Other)
  Sender: FDA-Public Use
  Company Number: NL-ABBVIE-17P-114-1827559-00

PATIENT
  Sex: Male
  Weight: 90 kg

DRUGS (2)
  1. RIVASTIGMINE. [Concomitant]
     Active Substance: RIVASTIGMINE
     Indication: PRODUCT USED FOR UNKNOWN INDICATION
     Dosage: 9,5MG/24UUR
  2. LUCRIN DEPOT [Suspect]
     Active Substance: LEUPROLIDE ACETATE
     Indication: PROSTATE CANCER
     Route: 065
     Dates: start: 20160127

REACTIONS (3)
  - Cancer pain [Not Recovered/Not Resolved]
  - Living in residential institution [Not Recovered/Not Resolved]
  - Cognitive disorder [Not Recovered/Not Resolved]
